FAERS Safety Report 17256242 (Version 4)
Quarter: 2022Q1

REPORT INFORMATION
  Report Type: Other
  Country: ES (occurrence: None)
  Receive Date: 20200110
  Receipt Date: 20220124
  Transmission Date: 20220423
  Serious: Yes (Other)
  Sender: FDA-Public Use
  Company Number: ES-ROCHE-2517814

PATIENT

DRUGS (2)
  1. RITUXIMAB [Suspect]
     Active Substance: RITUXIMAB
     Indication: Mantle cell lymphoma
     Dosage: FIRST CYCLE OF 28 DAYS (DAYS 1, 8,?15, AND 22 OF CYCLE 1) FOLLOWED BY FOUR MORE DOSES AT DAY ONE?OF
     Route: 041
  2. IBRUTINIB [Suspect]
     Active Substance: IBRUTINIB
     Indication: Mantle cell lymphoma
     Route: 048

REACTIONS (18)
  - Thrombocytopenia [Unknown]
  - Aplastic anaemia [Recovered/Resolved]
  - Toxic skin eruption [Unknown]
  - Adenocarcinoma pancreas [Unknown]
  - Lumbar vertebral fracture [Unknown]
  - Haematotoxicity [Unknown]
  - Neutropenia [Unknown]
  - Abdominal pain [Unknown]
  - Alanine aminotransferase increased [Unknown]
  - Skin infection [Unknown]
  - Arthralgia [Unknown]
  - Hypertension [Unknown]
  - Fatigue [Unknown]
  - Diarrhoea [Unknown]
  - Basal cell carcinoma [Unknown]
  - Bladder cancer [Unknown]
  - Atrial fibrillation [Unknown]
  - Cerebrovascular accident [Unknown]
